FAERS Safety Report 7706126-9 (Version None)
Quarter: 2011Q3

REPORT INFORMATION
  Report Type: 
  Country: None (occurrence: None)
  Receive Date: 20110818
  Receipt Date: 20110808
  Transmission Date: 20111222
  Serious: Yes (Death, Hospitalization)
  Sender: FDA-Public Use
  Company Number: ALP-11-13

PATIENT
  Age: 24 Year
  Sex: Male

DRUGS (3)
  1. NORDIAZEPAM [Concomitant]
  2. ALPRAZOLAM [Suspect]
  3. METHAMPHETAMINE HYDROCHLORIDE [Concomitant]

REACTIONS (4)
  - RESPIRATORY DEPRESSION [None]
  - TOXICITY TO VARIOUS AGENTS [None]
  - OVERDOSE [None]
  - DRUG INTOLERANCE [None]
